FAERS Safety Report 9897980 (Version 2)
Quarter: 2014Q1

REPORT INFORMATION
  Report Type: Spontaneous
  Country: US (occurrence: US)
  Receive Date: 20140214
  Receipt Date: 20140217
  Transmission Date: 20141002
  Serious: No
  Sender: FDA-Public Use
  Company Number: US-PFIZER INC-2014041530

PATIENT
  Age: 75 Year
  Sex: Male
  Weight: 102 kg

DRUGS (4)
  1. LYRICA [Suspect]
     Indication: DIABETIC NEUROPATHY
     Dosage: 200 MG, 2X/DAY
     Dates: end: 201401
  2. LYRICA [Suspect]
     Dosage: UNK
  3. CARVEDILOL [Concomitant]
     Indication: HYPERTENSION
     Dosage: 25 MG, DAILY
  4. METFORMIN [Concomitant]
     Indication: DIABETES MELLITUS
     Dosage: 1000 MG, 2X/DAY

REACTIONS (2)
  - Pain in extremity [Not Recovered/Not Resolved]
  - Mobility decreased [Not Recovered/Not Resolved]
